FAERS Safety Report 8299372-X (Version None)
Quarter: 2012Q2

REPORT INFORMATION
  Report Type: 
  Country: None (occurrence: None)
  Receive Date: 20120419
  Receipt Date: 20120411
  Transmission Date: 20120825
  Serious: Yes (Other)
  Sender: FDA-Public Use
  Company Number: US-JNJFOC-20120405396

PATIENT
  Sex: Female
  Weight: 117.94 kg

DRUGS (5)
  1. REMICADE [Suspect]
     Route: 042
     Dates: start: 20120101
  2. PREDNISONE TAB [Concomitant]
     Route: 065
  3. ALL OTHER THERAPEUTIC PRODUCT [Concomitant]
     Indication: SEASONAL ALLERGY
     Route: 048
  4. REMICADE [Suspect]
     Indication: COLITIS ULCERATIVE
     Route: 042
  5. MERCAPTOPURINE [Concomitant]
     Indication: COLITIS ULCERATIVE
     Route: 048
     Dates: start: 20090101

REACTIONS (2)
  - WEIGHT INCREASED [None]
  - OEDEMA PERIPHERAL [None]
